APPROVED DRUG PRODUCT: TRIAMCINOLONE ACETONIDE
Active Ingredient: TRIAMCINOLONE ACETONIDE
Strength: 0.025%
Dosage Form/Route: CREAM;TOPICAL
Application: A040671 | Product #001 | TE Code: AT
Applicant: MICRO LABS LTD
Approved: Jun 9, 2006 | RLD: No | RS: No | Type: RX